FAERS Safety Report 13074860 (Version 1)
Quarter: 2016Q4

REPORT INFORMATION
  Report Type: Spontaneous
  Country: US (occurrence: US)
  Receive Date: 20161230
  Receipt Date: 20161230
  Transmission Date: 20170207
  Serious: No
  Sender: FDA-Public Use
  Company Number: US-PFIZER INC-2016590726

PATIENT
  Age: 62 Year
  Sex: Female
  Weight: 128.35 kg

DRUGS (9)
  1. OXYCODONE [Suspect]
     Active Substance: OXYCODONE
     Indication: HEADACHE
  2. MOBIC [Suspect]
     Active Substance: MELOXICAM
     Indication: MIGRAINE
  3. OXYCODONE [Suspect]
     Active Substance: OXYCODONE
     Indication: PAIN
     Dosage: UNK
  4. NEURONTIN [Suspect]
     Active Substance: GABAPENTIN
     Indication: HEADACHE
  5. MOBIC [Suspect]
     Active Substance: MELOXICAM
     Indication: HEADACHE
  6. OXYCODONE [Suspect]
     Active Substance: OXYCODONE
     Indication: MIGRAINE
  7. MOBIC [Suspect]
     Active Substance: MELOXICAM
     Indication: PAIN
     Dosage: UNK
  8. NEURONTIN [Suspect]
     Active Substance: GABAPENTIN
     Indication: PAIN
     Dosage: UNK
  9. NEURONTIN [Suspect]
     Active Substance: GABAPENTIN
     Indication: MIGRAINE

REACTIONS (2)
  - Fatigue [Unknown]
  - Product use issue [Unknown]
